FAERS Safety Report 9890892 (Version 1)
Quarter: 2014Q1

REPORT INFORMATION
  Report Type: Spontaneous
  Country: US (occurrence: US)
  Receive Date: 20140212
  Receipt Date: 20140212
  Transmission Date: 20141002
  Serious: Yes (Other)
  Sender: FDA-Public Use
  Company Number: US-B.I. PHARMACEUTICALS,INC./RIDGEFIELD-2014-BI-05384BP

PATIENT
  Age: 63 Year
  Sex: Female

DRUGS (13)
  1. ZANTAC (RANITIDINE HYDROCHLORIDE) [Suspect]
     Indication: PRODUCT USED FOR UNKNOWN INDICATION
     Dosage: 150 MG
     Route: 048
     Dates: start: 201309
  2. MUCINEX [Concomitant]
     Route: 048
  3. XANAX [Concomitant]
     Route: 048
  4. MESALMINE ENEMA [Concomitant]
     Indication: COLITIS ULCERATIVE
     Route: 054
  5. SPIRIVA [Concomitant]
     Indication: CHRONIC OBSTRUCTIVE PULMONARY DISEASE
     Dosage: 18 MCG
     Route: 055
  6. MUPIROCIN [Concomitant]
     Indication: SINUS DISORDER
     Route: 045
  7. XOPENEX [Concomitant]
     Route: 055
  8. REGLAN [Concomitant]
     Indication: NAUSEA
     Route: 048
  9. BENICAR/HCTZ [Concomitant]
     Indication: HYPERTENSION
     Route: 048
  10. SINGULAIR [Concomitant]
     Route: 048
  11. PROPHYLACTIC CRANIAL IRRADIATION [Concomitant]
     Indication: SMALL CELL LUNG CANCER
     Dates: start: 201312
  12. CHEMOTHERAPHY [Concomitant]
     Indication: SMALL CELL LUNG CANCER
     Dates: start: 201312
  13. RADIATION TREATMENT [Concomitant]
     Indication: SMALL CELL LUNG CANCER
     Dates: start: 201312

REACTIONS (5)
  - Burn oesophageal [Recovered/Resolved]
  - Amnesia [Not Recovered/Not Resolved]
  - Colitis ulcerative [Not Recovered/Not Resolved]
  - Cystitis [Recovered/Resolved]
  - Swelling face [Recovered/Resolved]
